FAERS Safety Report 19954349 (Version 1)
Quarter: 2021Q4

REPORT INFORMATION
  Report Type: Spontaneous
  Country: US (occurrence: US)
  Receive Date: 20211014
  Receipt Date: 20211014
  Transmission Date: 20220303
  Serious: Yes (Hospitalization)
  Sender: FDA-Public Use
  Company Number: None

PATIENT
  Sex: Female

DRUGS (1)
  1. TALTZ [Suspect]
     Active Substance: IXEKIZUMAB
     Indication: Psoriatic arthropathy
     Dosage: ?          OTHER FREQUENCY:EVERY 4 WEEKS;
     Route: 058

REACTIONS (3)
  - Irritable bowel syndrome [None]
  - Abdominal pain upper [None]
  - Vasoactive intestinal polypeptide increased [None]
